FAERS Safety Report 14475357 (Version 1)
Quarter: 2018Q1

REPORT INFORMATION
  Report Type: Spontaneous
  Country: US (occurrence: US)
  Receive Date: 20180131
  Receipt Date: 20180131
  Transmission Date: 20180509
  Serious: Yes (Other)
  Sender: FDA-Public Use
  Company Number: None

PATIENT
  Age: 2 Year
  Sex: Male
  Weight: 15.75 kg

DRUGS (1)
  1. TAMIFLU [Suspect]
     Active Substance: OSELTAMIVIR PHOSPHATE
     Indication: INFLUENZA
     Dosage: ?          QUANTITY:1.5 TEASPOON(S);?
     Route: 048
     Dates: start: 20180115, end: 20180117

REACTIONS (6)
  - Agitation [None]
  - Nervousness [None]
  - Abnormal behaviour [None]
  - Feeling abnormal [None]
  - Lethargy [None]
  - Disorientation [None]

NARRATIVE: CASE EVENT DATE: 20180118
